FAERS Safety Report 14302748 (Version 2)
Quarter: 2018Q1

REPORT INFORMATION
  Report Type: Report from Study
  Country: US (occurrence: US)
  Receive Date: 20171219
  Receipt Date: 20180104
  Transmission Date: 20180509
  Serious: Yes (Other)
  Sender: FDA-Public Use
  Company Number: US-CELGENEUS-USA-20171203009

PATIENT
  Age: 81 Year
  Sex: Male
  Weight: 88.08 kg

DRUGS (3)
  1. RITUXIMAB. [Suspect]
     Active Substance: RITUXIMAB
     Indication: LYMPHOMA
     Dosage: 375 MILLIGRAM
     Route: 048
     Dates: start: 20141125, end: 20141125
  2. RITUXIMAB. [Suspect]
     Active Substance: RITUXIMAB
     Dosage: 375 MILLIGRAM
     Route: 048
     Dates: start: 20170222, end: 20170222
  3. CC-5013 [Suspect]
     Active Substance: LENALIDOMIDE
     Indication: LYMPHOMA
     Route: 048

REACTIONS (1)
  - Porocarcinoma [Recovered/Resolved]

NARRATIVE: CASE EVENT DATE: 20170824
